FAERS Safety Report 19115049 (Version 1)
Quarter: 2021Q2

REPORT INFORMATION
  Report Type: Other
  Country: IT (occurrence: IT)
  Receive Date: 20210408
  Receipt Date: 20210408
  Transmission Date: 20210717
  Serious: Yes (Other)
  Sender: FDA-Public Use
  Company Number: IT-VALIDUS PHARMACEUTICALS LLC-IT-2021VAL000437

PATIENT
  Age: 73 Year
  Sex: Male

DRUGS (2)
  1. LUVION                             /00252502/ [Concomitant]
     Active Substance: CANRENOATE POTASSIUM
     Indication: PRODUCT USED FOR UNKNOWN INDICATION
     Dosage: UNK
  2. LASIX [Suspect]
     Active Substance: FUROSEMIDE
     Indication: HYPERTENSION
     Dosage: 500 MG, SINGLE (1X)
     Route: 048
     Dates: start: 20100109, end: 20100109

REACTIONS (4)
  - Loss of consciousness [Recovering/Resolving]
  - Product administration error [Unknown]
  - Overdose [Unknown]
  - Orthostatic hypotension [Recovering/Resolving]

NARRATIVE: CASE EVENT DATE: 20100109
